FAERS Safety Report 5654744-4 (Version None)
Quarter: 2008Q1

REPORT INFORMATION
  Report Type: 
  Country: None (occurrence: None)
  Receive Date: 20080219
  Receipt Date: 20071020
  Transmission Date: 20080703
  Serious: No
  Sender: FDA-Public Use
  Company Number: WAES 0710USA04250

PATIENT
  Age: 82 Year
  Sex: Female

DRUGS (1)
  1. JANUVIA [Suspect]
     Dosage: 25MG/DAILY/PO
     Route: 048
     Dates: start: 20071018

REACTIONS (3)
  - DIZZINESS [None]
  - FATIGUE [None]
  - SOMNOLENCE [None]
